FAERS Safety Report 6263564-1 (Version None)
Quarter: 2009Q3

REPORT INFORMATION
  Report Type: 
  Country: None (occurrence: None)
  Receive Date: 20090710
  Receipt Date: 20090420
  Transmission Date: 20100115
  Serious: No
  Sender: FDA-Public Use
  Company Number: A0780859A

PATIENT
  Age: 64 Year
  Sex: Female

DRUGS (1)
  1. TYKERB [Suspect]
     Indication: DRUG USE FOR UNKNOWN INDICATION
     Dosage: 5TAB PER DAY
     Dates: start: 20090319

REACTIONS (3)
  - GASTROENTERITIS VIRAL [None]
  - NAUSEA [None]
  - VOMITING [None]
